FAERS Safety Report 19108994 (Version 1)
Quarter: 2021Q2

REPORT INFORMATION
  Report Type: Spontaneous
  Country: AR (occurrence: AR)
  Receive Date: 20210409
  Receipt Date: 20210409
  Transmission Date: 20210717
  Serious: No
  Sender: FDA-Public Use
  Company Number: AR-LUPIN PHARMACEUTICALS INC.-2021-04270

PATIENT
  Sex: Female

DRUGS (2)
  1. CLOBETASOL [Suspect]
     Active Substance: CLOBETASOL
     Indication: HERPES GESTATIONIS
     Dosage: UNK
     Route: 061
  2. MEPREDNISONE [Suspect]
     Active Substance: MEPREDNISONE
     Indication: HERPES GESTATIONIS
     Dosage: 1 MILLIGRAM/KILOGRAM, QD
     Route: 048

REACTIONS (1)
  - Maternal exposure during pregnancy [Unknown]
